FAERS Safety Report 8973775 (Version 1)
Quarter: 2012Q4

REPORT INFORMATION
  Report Type: 
  Country: US (occurrence: US)
  Receive Date: 20121218
  Receipt Date: 20121218
  Transmission Date: 20130627
  Serious: No
  Sender: FDA-Public Use
  Company Number: US-BRISTOL-MYERS SQUIBB COMPANY-16411761

PATIENT
  Age: 50 Year
  Sex: Female

DRUGS (5)
  1. ABILIFY [Suspect]
     Indication: MAJOR DEPRESSION
     Route: 048
     Dates: start: 20110818, end: 20111216
  2. CYMBALTA [Concomitant]
  3. LORAZEPAM [Concomitant]
  4. COMBIPATCH [Concomitant]
  5. DEXLANSOPRAZOLE [Concomitant]

REACTIONS (1)
  - Hepatic enzyme increased [Recovered/Resolved]
